FAERS Safety Report 8537903-2 (Version None)
Quarter: 2012Q3

REPORT INFORMATION
  Report Type: 
  Country: None (occurrence: None)
  Receive Date: 20120725
  Receipt Date: 20120718
  Transmission Date: 20120928
  Serious: Yes (Other)
  Sender: FDA-Public Use
  Company Number: US-GLAXOSMITHKLINE-A0984935A

PATIENT
  Age: 72 Year
  Sex: Male

DRUGS (3)
  1. ADVAIR DISKUS 100/50 [Suspect]
     Indication: BRONCHITIS
     Dosage: 1PUFF TWICE PER DAY
     Route: 055
     Dates: start: 20120716
  2. CELEBREX [Suspect]
     Indication: PAIN
     Route: 048
  3. FLUTICASONE NASAL [Concomitant]

REACTIONS (2)
  - DRUG ADMINISTRATION ERROR [None]
  - HAEMATOCHEZIA [None]
